FAERS Safety Report 7703662-6 (Version None)
Quarter: 2011Q3

REPORT INFORMATION
  Report Type: 
  Country: None (occurrence: None)
  Receive Date: 20110823
  Receipt Date: 20110819
  Transmission Date: 20111222
  Serious: Yes (Other)
  Sender: FDA-Public Use
  Company Number: US-PFIZER INC-2011057206

PATIENT
  Sex: Male
  Weight: 99.773 kg

DRUGS (17)
  1. CELEBREX [Suspect]
     Indication: OSTEOARTHRITIS
     Dosage: 200 MG, 2X/DAY
     Route: 048
     Dates: start: 19970101
  2. ALDACTONE [Concomitant]
     Dosage: UNK
  3. NAMENDA [Concomitant]
     Dosage: UNK
  4. NORVASC [Suspect]
     Dosage: 10 MG, 1X/DAY
     Route: 048
     Dates: start: 19970101
  5. PROZAC [Concomitant]
     Dosage: UNK
  6. LOPRESSOR [Concomitant]
     Dosage: UNK
  7. CENTRUM SILVER [Concomitant]
     Dosage: UNK, 1X/DAY
  8. AVELOX [Concomitant]
     Dosage: UNK
  9. LASIX [Concomitant]
     Dosage: UNK
  10. EXELON [Concomitant]
     Dosage: UNK
  11. IMDUR [Concomitant]
     Dosage: UNK
  12. POTASSIUM CHLORIDE [Concomitant]
     Dosage: UNK
  13. PRAVACHOL [Concomitant]
     Indication: BLOOD CHOLESTEROL INCREASED
     Dosage: UNK
  14. SYMBICORT [Concomitant]
     Dosage: UNK
  15. TYLENOL-500 [Concomitant]
     Dosage: UNK, AS NEEDED
  16. NORVASC [Suspect]
     Indication: HYPERTENSION
     Dosage: 10 MG, 1X/DAY
     Route: 048
     Dates: start: 19970101
  17. ACETYLSALICYLIC ACID [Concomitant]
     Dosage: 325 MG, UNK

REACTIONS (2)
  - DEMENTIA ALZHEIMER'S TYPE [None]
  - CEREBROVASCULAR ACCIDENT [None]
